FAERS Safety Report 13663129 (Version 2)
Quarter: 2017Q3

REPORT INFORMATION
  Report Type: Spontaneous
  Country: US (occurrence: US)
  Receive Date: 20170619
  Receipt Date: 20170712
  Transmission Date: 20171127
  Serious: Yes (Disabling)
  Sender: FDA-Public Use
  Company Number: US-ROCHE-1946743

PATIENT
  Sex: Male

DRUGS (1)
  1. OCREVUS [Suspect]
     Active Substance: OCRELIZUMAB
     Indication: PRODUCT USED FOR UNKNOWN INDICATION
     Route: 065

REACTIONS (3)
  - Hypoaesthesia [Unknown]
  - Blindness unilateral [Unknown]
  - Gait disturbance [Unknown]
